FAERS Safety Report 21691654 (Version 1)
Quarter: 2022Q4

REPORT INFORMATION
  Report Type: Report from Study
  Country: US (occurrence: US)
  Receive Date: 20221207
  Receipt Date: 20221207
  Transmission Date: 20230112
  Serious: Yes (Other)
  Sender: FDA-Public Use
  Company Number: US-BRISTOL-MYERS SQUIBB COMPANY-2022-102914

PATIENT
  Age: 49 Year
  Sex: Male
  Weight: 120.2 kg

DRUGS (3)
  1. REVLIMID [Suspect]
     Active Substance: LENALIDOMIDE
     Indication: Plasma cell myeloma
     Dosage: FREQUENCY: DAILY  2 WEEKS ON 1 WEEK OFF.
     Route: 048
     Dates: start: 20220202
  2. REVLIMID [Suspect]
     Active Substance: LENALIDOMIDE
     Dosage: FREQUENCY: 14 OUT OF 21 DAYS
     Route: 048
     Dates: start: 20220202
  3. DEXAMETHASONE [Concomitant]
     Active Substance: DEXAMETHASONE

REACTIONS (3)
  - Illness [Unknown]
  - Off label use [Unknown]
  - Ejection fraction decreased [Unknown]
